FAERS Safety Report 4561087-9 (Version None)
Quarter: 2005Q1

REPORT INFORMATION
  Report Type: 
  Country: None (occurrence: None)
  Receive Date: 20050126
  Receipt Date: 20041213
  Transmission Date: 20050727
  Serious: No
  Sender: FDA-Public Use
  Company Number: US-BRISTOL-MYERS SQUIBB COMPANY-12793972

PATIENT
  Age: 86 Year
  Sex: Male
  Weight: 85 kg

DRUGS (6)
  1. GLUCOPHAGE [Suspect]
     Indication: DIABETES MELLITUS
     Route: 048
  2. MULTI-VITAMIN [Concomitant]
  3. ACCUVITE [Concomitant]
  4. ECOTRIN [Concomitant]
  5. CALCIUM GLUCONATE [Concomitant]
  6. FLAXSEED OIL [Concomitant]

REACTIONS (1)
  - HEART RATE IRREGULAR [None]
